FAERS Safety Report 21502150 (Version 1)
Quarter: 2022Q4

REPORT INFORMATION
  Report Type: Spontaneous
  Country: US (occurrence: US)
  Receive Date: 20221025
  Receipt Date: 20221025
  Transmission Date: 20230113
  Serious: No
  Sender: FDA-Public Use
  Company Number: US-SA-SAC20221021000925

PATIENT
  Sex: Female

DRUGS (10)
  1. DUPIXENT [Suspect]
     Active Substance: DUPILUMAB
     Indication: Dermatitis atopic
     Dosage: 300 MG, QOW
     Route: 058
     Dates: start: 20200303
  2. AZITHROMYCIN [Concomitant]
     Active Substance: AZITHROMYCIN
  3. IBUPROFEN [Concomitant]
     Active Substance: IBUPROFEN
  4. MIRENA [Concomitant]
     Active Substance: LEVONORGESTREL
  5. PREDNISONE [Concomitant]
     Active Substance: PREDNISONE
  6. PROMETHAZINE [Concomitant]
     Active Substance: PROMETHAZINE HYDROCHLORIDE
  7. CYCLOBENZAPRINE [Concomitant]
     Active Substance: CYCLOBENZAPRINE
  8. METHOCARBAMOL [Concomitant]
     Active Substance: METHOCARBAMOL
  9. METHYLERGOMETRINE [Concomitant]
     Active Substance: METHYLERGONOVINE MALEATE
  10. MILT [DIMETINDENE MALEATE;PHENYLEPHRINE] [Concomitant]

REACTIONS (1)
  - Injection site reaction [Not Recovered/Not Resolved]
